FAERS Safety Report 8351318-1 (Version None)
Quarter: 2012Q2

REPORT INFORMATION
  Report Type: 
  Country: None (occurrence: None)
  Receive Date: 20120510
  Receipt Date: 20120430
  Transmission Date: 20120825
  Serious: Yes (Death)
  Sender: FDA-Public Use
  Company Number: PH-BAXTER-2012BAX001868

PATIENT
  Sex: Male

DRUGS (2)
  1. DIANEAL PD-2 W/ DEXTROSE 4.25% [Suspect]
     Route: 033
     Dates: start: 20081114
  2. DIANEAL PD-2 W/ DEXTROSE 1.5% [Suspect]
     Route: 033
     Dates: start: 20081114

REACTIONS (4)
  - PERITONEAL DIALYSIS COMPLICATION [None]
  - MYOCARDIAL INFARCTION [None]
  - PERITONEAL CLOUDY EFFLUENT [None]
  - OEDEMA [None]
